FAERS Safety Report 6009987-7 (Version None)
Quarter: 2008Q4

REPORT INFORMATION
  Report Type: 
  Country: None (occurrence: None)
  Receive Date: 20081216
  Receipt Date: 20081202
  Transmission Date: 20090506
  Serious: Yes (Hospitalization)
  Sender: FDA-Public Use
  Company Number: 2008AL012298

PATIENT
  Age: 82 Year
  Sex: Female

DRUGS (6)
  1. OXAZEPAM CAPSULES USP, [Suspect]
     Dosage: 15 MG; BID; PO
     Route: 048
     Dates: start: 20081102, end: 20081118
  2. LISINOPRIL [Concomitant]
  3. ARICEPT [Concomitant]
  4. BIMATOPROST [Concomitant]
  5. BRINZOLAMIDE [Concomitant]
  6. PILOKARPIN [Concomitant]

REACTIONS (8)
  - BALANCE DISORDER [None]
  - CONTUSION [None]
  - DIARRHOEA [None]
  - DIZZINESS [None]
  - GAIT DISTURBANCE [None]
  - MALAISE [None]
  - ORTHOSTATIC HYPOTENSION [None]
  - VOMITING [None]
